FAERS Safety Report 13097159 (Version 1)
Quarter: 2017Q1

REPORT INFORMATION
  Report Type: Spontaneous
  Country: US (occurrence: US)
  Receive Date: 20170107
  Receipt Date: 20170107
  Transmission Date: 20170428
  Serious: Yes (Hospitalization)
  Sender: FDA-Public Use
  Company Number: None

PATIENT
  Age: 56 Year
  Sex: Male
  Weight: 98.1 kg

DRUGS (9)
  1. LARIAM [Suspect]
     Active Substance: MEFLOQUINE HYDROCHLORIDE
     Indication: MALARIA PROPHYLAXIS
     Dosage: QUANTITY:1 TABLET(S);OTHER FREQUENCY:WEEKLY; ORAL?
     Route: 048
     Dates: start: 20070601, end: 20070801
  2. AMBIEN [Concomitant]
     Active Substance: ZOLPIDEM TARTRATE
  3. TAMUSALIN [Concomitant]
  4. CLARITIN [Concomitant]
     Active Substance: LORATADINE
  5. MULTIVITAMIN [Concomitant]
     Active Substance: VITAMINS
  6. VITAMIN C [Concomitant]
     Active Substance: ASCORBIC ACID
  7. CALCIUM [Concomitant]
     Active Substance: CALCIUM
  8. TEA [Concomitant]
     Active Substance: TEA LEAF
  9. MAGNISIUM [Concomitant]

REACTIONS (14)
  - Personality change [None]
  - Hallucination [None]
  - Panic attack [None]
  - Insomnia [None]
  - Amnesia [None]
  - Heart rate abnormal [None]
  - Balance disorder [None]
  - Dizziness [None]
  - Polyneuropathy [None]
  - Paraesthesia [None]
  - Transient ischaemic attack [None]
  - Paranoia [None]
  - Abnormal dreams [None]
  - Post-traumatic stress disorder [None]

NARRATIVE: CASE EVENT DATE: 20070630
